FAERS Safety Report 4866968-4 (Version None)
Quarter: 2005Q4

REPORT INFORMATION
  Report Type: 
  Country: None (occurrence: None)
  Receive Date: 20051222
  Receipt Date: 20051216
  Transmission Date: 20060501
  Serious: Yes (Death, Life-Threatening)
  Sender: FDA-Public Use
  Company Number: 200413011GDS

PATIENT
  Age: 63 Year
  Sex: Female
  Weight: 65.5 kg

DRUGS (15)
  1. MOXIFLOXACIN HCL [Suspect]
     Indication: PNEUMONIA
     Dosage: 400 MG, QD, INTRAVENOUS
     Route: 042
     Dates: start: 20041029, end: 20041031
  2. BISOCARD [Concomitant]
  3. POLOCARD [Concomitant]
  4. ZOCOR [Concomitant]
  5. MONO MACK - SLOW RELEASE [Concomitant]
  6. EPRIL [Concomitant]
  7. AMPICILLIN SODIUM [Concomitant]
  8. PYRALGIN [Concomitant]
  9. POLTRAM [Concomitant]
  10. SODIUM CHLORIDE 0.9% [Concomitant]
  11. HYDROCORTISONUM HEMISUCCINATUM [Concomitant]
  12. FUROSEMIDUM [Concomitant]
  13. AMINOPHYLLINUM [Concomitant]
  14. FLEGAMINA [Concomitant]
  15. KALIUM CHLORATUM [Concomitant]

REACTIONS (15)
  - ARTERIOSCLEROSIS [None]
  - BRONCHOPNEUMONIA [None]
  - CARDIAC ARREST [None]
  - CONDUCTION DISORDER [None]
  - DISEASE PROGRESSION [None]
  - DIVERTICULUM INTESTINAL [None]
  - DRUG INEFFECTIVE [None]
  - HEPATIC CANCER METASTATIC [None]
  - METASTASES TO LUNG [None]
  - METASTASES TO PLEURA [None]
  - MYOCARDIAL FIBROSIS [None]
  - MYOCARDIAL INFARCTION [None]
  - PNEUMONIA [None]
  - RESPIRATORY FAILURE [None]
  - TUMOUR INVASION [None]
